FAERS Safety Report 4337421-1 (Version None)
Quarter: 2004Q1

REPORT INFORMATION
  Report Type: 
  Country: None (occurrence: None)
  Receive Date: 20040329
  Receipt Date: 20040120
  Transmission Date: 20041129
  Serious: No
  Sender: FDA-Public Use
  Company Number: USA040157084

PATIENT
  Age: 13 Year
  Sex: Female
  Weight: 45 kg

DRUGS (2)
  1. STRATTERA [Suspect]
     Indication: ATTENTION DEFICIT/HYPERACTIVITY DISORDER
     Dosage: 60 MG/DAY
     Dates: start: 20031201
  2. DEXEDRINE (DEXAMFETAMINE SULFATE) [Concomitant]

REACTIONS (5)
  - ANXIETY [None]
  - CRYING [None]
  - EDUCATIONAL PROBLEM [None]
  - FEAR [None]
  - STRESS SYMPTOMS [None]
